FAERS Safety Report 9547933 (Version 1)
Quarter: 2013Q3

REPORT INFORMATION
  Report Type: Spontaneous
  Country: US (occurrence: None)
  Receive Date: 20130719
  Receipt Date: 20130719
  Transmission Date: 20140515
  Serious: Yes (Hospitalization)
  Sender: FDA-Public Use
  Company Number: 2012BAX019363

PATIENT
  Age: 5 Year
  Sex: Female

DRUGS (18)
  1. CYCLOPHOSPHAMIDE [Suspect]
     Indication: PRODUCT USED FOR UNKNOWN INDICATION
  2. DAUNORUBICIN [Suspect]
     Indication: ACUTE LYMPHOCYTIC LEUKAEMIA
     Route: 042
     Dates: start: 20120523
  3. VINCRISTINE [Suspect]
     Indication: PRODUCT USED FOR UNKNOWN INDICATION
     Dates: start: 20120606
  4. DASATINIB [Suspect]
     Indication: ACUTE LYMPHOCYTIC LEUKAEMIA
     Route: 048
     Dates: start: 20120606
  5. METHOTREXATE [Suspect]
     Indication: ACUTE LYMPHOCYTIC LEUKAEMIA
     Route: 042
     Dates: start: 20120904, end: 20120904
  6. DECADRON (DEXAMETHASONE PHOSPHATE) [Concomitant]
  7. PEPCID (FAMOTIDINE) [Concomitant]
  8. DIFLUCAN (FLUCONAZOLE) [Concomitant]
  9. ZOFRAN (ONDANSETRON) [Concomitant]
  10. NEUPOGEN (FILGRASTIM) [Concomitant]
  11. MIRALAX (MACROGOL 3350) [Concomitant]
  12. PERIDEX (CHLORHEXIDINE GLUCONATE) [Concomitant]
  13. BACTRIM [Concomitant]
  14. MORPHINE (MORPHINE) [Concomitant]
  15. TYLENOL (PARACETAMOL) [Concomitant]
  16. MAALOX (CALCIUM CARBONATE) [Concomitant]
  17. BENADRYL (DIPHENHYDRAMINE, PARACETAMOL, PHENYLPROPANOLAMINE HYDROCHLORIDE) [Concomitant]
  18. XYLOCAINE (LIDOCAINE HYDROCHLORIDE) [Concomitant]

REACTIONS (4)
  - Febrile neutropenia [None]
  - Neutropenia [None]
  - Mucosal inflammation [None]
  - Pyrexia [None]
